FAERS Safety Report 16245117 (Version 2)
Quarter: 2019Q3

REPORT INFORMATION
  Report Type: Spontaneous
  Country: US (occurrence: US)
  Receive Date: 20190426
  Receipt Date: 20190709
  Transmission Date: 20191004
  Serious: Yes (Other)
  Sender: FDA-Public Use
  Company Number: US-NAPPMUNDI-USA-2019-0146976

PATIENT
  Age: 72 Year
  Sex: Female

DRUGS (4)
  1. INFLUENZA VACCINE [Suspect]
     Active Substance: INFLUENZA VIRUS VACCINE
     Indication: PRODUCT USED FOR UNKNOWN INDICATION
     Route: 065
  2. OXYCONTIN [Suspect]
     Active Substance: OXYCODONE HYDROCHLORIDE
     Indication: PRODUCT USED FOR UNKNOWN INDICATION
     Route: 048
  3. HUMIRA [Suspect]
     Active Substance: ADALIMUMAB
     Indication: RHEUMATOID ARTHRITIS
     Dosage: 40 MG, 1 IN 2-2
     Route: 058
     Dates: start: 201603
  4. METHOTREXATE. [Concomitant]
     Active Substance: METHOTREXATE

REACTIONS (16)
  - Joint swelling [Not Recovered/Not Resolved]
  - Burning sensation [Unknown]
  - Vomiting [Unknown]
  - Contusion [Unknown]
  - Arthralgia [Not Recovered/Not Resolved]
  - Anxiety [Not Recovered/Not Resolved]
  - Skin lesion [Unknown]
  - Venous perforation [Not Recovered/Not Resolved]
  - Nasopharyngitis [Not Recovered/Not Resolved]
  - Mass [Unknown]
  - Rheumatoid arthritis [Not Recovered/Not Resolved]
  - Umbilical hernia [Recovering/Resolving]
  - Pain [Unknown]
  - Sciatica [Unknown]
  - Osteoarthritis [Unknown]
  - Stress [Not Recovered/Not Resolved]

NARRATIVE: CASE EVENT DATE: 2017
